FAERS Safety Report 17119432 (Version 2)
Quarter: 2019Q4

REPORT INFORMATION
  Report Type: Spontaneous
  Country: SE (occurrence: SE)
  Receive Date: 20191206
  Receipt Date: 20191210
  Transmission Date: 20200122
  Serious: Yes (Hospitalization)
  Sender: FDA-Public Use
  Company Number: SE-JNJFOC-20191145318

PATIENT
  Age: 18 Year
  Sex: Female

DRUGS (4)
  1. IPREN UNSPECIFIED [Suspect]
     Active Substance: IBUPROFEN
     Indication: PRODUCT USED FOR UNKNOWN INDICATION
     Dosage: IBUPROFEN/IBUPROFEN DC 85
     Route: 048
     Dates: start: 20190705, end: 20190705
  2. MELATONIN [Suspect]
     Active Substance: MELATONIN
     Indication: PRODUCT USED FOR UNKNOWN INDICATION
     Route: 048
     Dates: start: 20190705, end: 20190705
  3. LERGIGAN                           /00033002/ [Suspect]
     Active Substance: PROMETHAZINE HYDROCHLORIDE
     Indication: PRODUCT USED FOR UNKNOWN INDICATION
     Dosage: PROMETHAZINE/PROMETHAZINE HYDROCHLORIDE
     Route: 048
     Dates: start: 20190705, end: 20190705
  4. SERTRALINE [Suspect]
     Active Substance: SERTRALINE HYDROCHLORIDE
     Indication: PRODUCT USED FOR UNKNOWN INDICATION
     Route: 048
     Dates: start: 20190705, end: 20190705

REACTIONS (3)
  - Depressed level of consciousness [Unknown]
  - Intentional overdose [Unknown]
  - Intentional self-injury [Unknown]

NARRATIVE: CASE EVENT DATE: 20190705
